FAERS Safety Report 4349267-9 (Version None)
Quarter: 2004Q2

REPORT INFORMATION
  Report Type: 
  Country: None (occurrence: None)
  Receive Date: 20040428
  Receipt Date: 20040419
  Transmission Date: 20050107
  Serious: Yes (Other)
  Sender: FDA-Public Use
  Company Number: NL-BRISTOL-MYERS SQUIBB COMPANY-12562864

PATIENT

DRUGS (7)
  1. METHOTREXATE [Suspect]
     Indication: CENTRAL NERVOUS SYSTEM LYMPHOMA
     Dosage: 3 G/M^2 ON DAYS 1 + 5
     Route: 042
  2. TENIPOSIDE [Suspect]
     Indication: CENTRAL NERVOUS SYSTEM LYMPHOMA
     Route: 042
  3. CARMUSTINE [Suspect]
     Indication: CENTRAL NERVOUS SYSTEM LYMPHOMA
     Route: 042
  4. METHYLPREDNISOLONE [Suspect]
     Indication: CENTRAL NERVOUS SYSTEM LYMPHOMA
     Route: 048
  5. HYDROCORTISONE [Suspect]
     Indication: CENTRAL NERVOUS SYSTEM LYMPHOMA
  6. CYTARABINE [Suspect]
     Indication: CENTRAL NERVOUS SYSTEM LYMPHOMA
  7. RADIOTHERAPY [Suspect]
     Indication: CENTRAL NERVOUS SYSTEM LYMPHOMA

REACTIONS (1)
  - COGNITIVE DISORDER [None]
